FAERS Safety Report 9388980 (Version 1)
Quarter: 2013Q3

REPORT INFORMATION
  Report Type: Report from Study
  Country: TW (occurrence: TW)
  Receive Date: 20130708
  Receipt Date: 20130708
  Transmission Date: 20140515
  Serious: No
  Sender: FDA-Public Use
  Company Number: PHHY2013TW071233

PATIENT
  Age: 50 Year
  Sex: Male

DRUGS (63)
  1. AMN107 [Suspect]
     Dosage: 800 MG, UNK
     Dates: start: 20110425
  2. ACETAMINOPHEN [Concomitant]
     Indication: GASTROENTERITIS
     Dosage: UNK
     Dates: start: 20130215, end: 20130218
  3. ACETAMINOPHEN [Concomitant]
     Dosage: UNK
     Dates: start: 20130319, end: 20130326
  4. ACETAMINOPHEN [Concomitant]
     Dosage: UNK
     Dates: start: 20130412, end: 20130419
  5. AMBROXOL HCL [Concomitant]
     Indication: NASOPHARYNGITIS
     Dosage: UNK
     Dates: start: 20111122, end: 20111202
  6. AMBROXOL HCL [Concomitant]
     Dosage: UNK
     Dates: start: 20120120, end: 20120130
  7. AMBROXOL HCL [Concomitant]
     Dosage: UNK
     Dates: start: 20121016, end: 20121025
  8. AMBROXOL HCL [Concomitant]
     Dosage: UNK
     Dates: start: 20130319, end: 20130408
  9. AMBROXOL HCL [Concomitant]
     Dosage: UNK
     Dates: start: 20130412
  10. AMLODIPINE BESYLATE [Concomitant]
     Indication: HYPERTENSION
     Dosage: UNK
     Dates: start: 20110215, end: 20110524
  11. AMLODIPINE BESYLATE [Concomitant]
     Dosage: UNK
     Dates: start: 20110802, end: 20121224
  12. ANTAZOLINE HYDROCHLORIDE [Concomitant]
     Indication: CONJUNCTIVITIS
     Dosage: UNK
     Dates: start: 20120120, end: 20120409
  13. BETAMETHASONE VALERATE [Concomitant]
     Indication: PRURITUS
     Dosage: UNK
     Dates: start: 20120921, end: 20121015
  14. BETAMETHASONE VALERATE [Concomitant]
     Dosage: UNK
     Dates: start: 20121225, end: 20130117
  15. CLOBETASONE BUTYRATE [Concomitant]
     Indication: PRURITUS
     Dosage: UNK
     Dates: start: 20110503, end: 20110523
  16. CLOBETASONE BUTYRATE [Concomitant]
     Dosage: UNK
     Dates: start: 20110802, end: 20110830
  17. CLOBETASONE BUTYRATE [Concomitant]
     Dosage: UNK
     Dates: start: 20120921, end: 20121112
  18. CLOBETASONE BUTYRATE [Concomitant]
     Dosage: UNK
     Dates: start: 20121225, end: 20130117
  19. CALCIUM POLYSTYRENE SULFONATE [Concomitant]
     Indication: HYPERKALAEMIA
     Dosage: UNK
     Dates: start: 20120918, end: 20120921
  20. CHOLESTYRAMINE RESIN [Concomitant]
     Indication: DIARRHOEA
     Dosage: UNK
     Dates: start: 20110705, end: 20110707
  21. CHOLESTYRAMINE RESIN [Concomitant]
     Dosage: UNK
     Dates: start: 20110802, end: 20110809
  22. CHOLESTYRAMINE RESIN [Concomitant]
     Dosage: UNK
     Dates: start: 20110830, end: 20110927
  23. CIPROFLOXACIN HYDROCHLORIDE MONOHYDRATE [Concomitant]
     Indication: GASTROENTERITIS
     Dosage: UNK
     Dates: start: 20130215, end: 20130218
  24. CIPROFLOXACIN LACTATE [Concomitant]
     Indication: GASTROENTERITIS
     Dosage: UNK
     Dates: start: 20130215, end: 20130215
  25. CLONAZEPAM [Concomitant]
     Indication: INSOMNIA
     Dosage: UNK
     Dates: start: 20110215, end: 20110524
  26. CLONAZEPAM [Concomitant]
     Dosage: UNK
     Dates: start: 20110802, end: 20120119
  27. CLONAZEPAM [Concomitant]
     Dosage: UNK
     Dates: start: 20120214, end: 20120820
  28. CLONAZEPAM [Concomitant]
     Dosage: UNK
     Dates: start: 20121016, end: 20121203
  29. DEXTROMETHORPHAN [Concomitant]
     Indication: NASOPHARYNGITIS
     Dosage: UNK
     Dates: start: 20111122, end: 20111202
  30. DEXTROMETHORPHAN [Concomitant]
     Dosage: UNK
     Dates: start: 20120120, end: 20120130
  31. DEXTROMETHORPHAN HBR [Concomitant]
     Indication: UPPER RESPIRATORY TRACT INFECTION
     Dosage: UNK
     Dates: start: 20121016, end: 20121025
  32. DEXTROMETHORPHAN HBR [Concomitant]
     Dosage: UNK
     Dates: start: 20130319, end: 20130408
  33. DEXTROMETHORPHAN HBR [Concomitant]
     Dosage: UNK
     Dates: start: 20130412
  34. DIMETHICONE [Concomitant]
     Indication: FLATULENCE
     Dosage: UNK
     Dates: start: 20110705, end: 20110801
  35. DIMETHICONE [Concomitant]
     Dosage: UNK
     Dates: start: 20111122, end: 20120119
  36. DIMETHICONE [Concomitant]
     Dosage: UNK
     Dates: start: 20120410, end: 20120720
  37. DIMETHICONE [Concomitant]
     Dosage: UNK
     Dates: start: 20120821, end: 20121112
  38. DIMETHICONE [Concomitant]
     Dosage: UNK
     Dates: start: 20130118
  39. DIOKTAEDRISCHER SMEKTIT [Concomitant]
     Indication: DIARRHOEA
     Dosage: UNK
     Dates: start: 20110621, end: 20110801
  40. DIOKTAEDRISCHER SMEKTIT [Concomitant]
     Dosage: UNK
     Dates: start: 20130215, end: 20130218
  41. FAMOTIDINE [Concomitant]
     Indication: GASTROOESOPHAGEAL REFLUX DISEASE
     Dosage: UNK
     Dates: start: 20130118
  42. FEXOFENADINE HCL [Concomitant]
     Indication: NASOPHARYNGITIS
     Dosage: UNK
     Dates: start: 20111122, end: 20111202
  43. FEXOFENADINE HCL [Concomitant]
     Dosage: UNK
     Dates: start: 20120120, end: 20120130
  44. FEXOFENADINE HCL [Concomitant]
     Dosage: UNK
     Dates: start: 20121016, end: 20121025
  45. FEXOFENADINE HCL [Concomitant]
     Dosage: UNK
     Dates: start: 20130319, end: 20130408
  46. FEXOFENADINE HCL [Concomitant]
     Dosage: UNK
     Dates: start: 20130412
  47. FLUNITRAZEPAM [Concomitant]
     Indication: INSOMNIA
     Dosage: UNK
     Dates: start: 20120120, end: 20120213
  48. FLUNITRAZEPAM [Concomitant]
     Dosage: UNK
     Dates: start: 20130118
  49. FUSIDIC ACID [Concomitant]
     Indication: PRURITUS
     Dosage: UNK
     Dates: start: 20110524, end: 20110621
  50. HYDROCORTISONE ACETATE [Concomitant]
     Indication: PRURITUS
     Dosage: UNK
     Dates: start: 20120508, end: 20120821
  51. INFLUENZA VACCINE INACTIVATED [Concomitant]
     Indication: PROPHYLAXIS
     Dosage: UNK
     Dates: start: 20121113, end: 20121113
  52. INDAPAMIDE [Concomitant]
     Indication: HYPERTENSION
     Dosage: UNK
     Dates: start: 20110215, end: 20110524
  53. LACTULOSE [Concomitant]
     Indication: CONSTIPATION
     Dosage: UNK
     Dates: start: 20120410, end: 20120414
  54. LEVOCETIRIZINE [Concomitant]
     Indication: PRURITUS
     Dosage: UNK
     Dates: start: 20110621, end: 20110801
  55. LOPERAMIDE HCL [Concomitant]
     Indication: DIARRHOEA
     Dosage: UNK
     Dates: start: 20121113, end: 20121123
  56. MAGNESIUM OXIDE [Concomitant]
     Indication: CONSTIPATION
     Dosage: UNK
     Dates: start: 20120410, end: 20120723
  57. PRAVASTATIN SODIUM [Concomitant]
     Indication: HYPERCHOLESTEROLAEMIA
     Dosage: UNK
     Dates: start: 20120724, end: 20120918
  58. PRAVASTATIN SODIUM [Concomitant]
     Dosage: UNK
     Dates: start: 20121016, end: 20121203
  59. PRAVASTATIN SODIUM [Concomitant]
     Dosage: UNK
     Dates: start: 20121225
  60. PROCHLORPERAZINE MALEATE [Concomitant]
     Indication: GASTROENTERITIS
     Dosage: UNK
     Dates: start: 20130215, end: 20130218
  61. PROCHLORPERAZINE MESILATE [Concomitant]
     Indication: GASTROENTERITIS
     Dosage: UNK
     Dates: start: 20130215, end: 20130215
  62. SERTACONAZOLE NITRATE [Concomitant]
     Indication: PRURITUS
     Dosage: UNK
     Dates: start: 20121225, end: 20130117
  63. SULFAMETHOXAZOLE [Concomitant]
     Indication: CONJUNCTIVITIS
     Dosage: UNK
     Dates: start: 20120120, end: 20120213

REACTIONS (1)
  - Blood cholesterol increased [Unknown]
